FAERS Safety Report 6866849-0 (Version None)
Quarter: 2010Q2

REPORT INFORMATION
  Report Type: 
  Country: None (occurrence: None)
  Receive Date: 20100607
  Receipt Date: 20080312
  Transmission Date: 20101027
  Serious: No
  Sender: FDA-Public Use
  Company Number: 2008-00063

PATIENT
  Age: 45 Year
  Sex: Female
  Weight: 61.2356 kg

DRUGS (3)
  1. ZICAM COLD REMEDY RAPIDMELTS [Suspect]
     Dosage: 3 DOSES
     Dates: start: 20070701
  2. PREDNISONE [Concomitant]
  3. OXYCODONE HCL [Concomitant]

REACTIONS (2)
  - AGEUSIA [None]
  - ANOSMIA [None]
